FAERS Safety Report 4602370-8 (Version None)
Quarter: 2005Q1

REPORT INFORMATION
  Report Type: 
  Country: None (occurrence: None)
  Receive Date: 20050307
  Receipt Date: 20050218
  Transmission Date: 20050727
  Serious: Yes (Other)
  Sender: FDA-Public Use
  Company Number: 2005029109

PATIENT
  Age: 40 Year
  Sex: Female
  Weight: 80.7403 kg

DRUGS (9)
  1. BEXTRA [Suspect]
     Indication: OSTEOARTHRITIS
     Dosage: 20 MG (20 MG, 1 IN 1 D),ORAL
     Route: 048
     Dates: start: 20040101, end: 20040101
  2. MORPHINE (MORPHINE) [Concomitant]
  3. GABAPENTIN [Concomitant]
  4. ESTRADIOL [Concomitant]
  5. METFORMIN HCL [Concomitant]
  6. GUAIFENESIN (GAUAIFENESIN) [Concomitant]
  7. CITALOPRAM HYDROBROMIDE (CITALOPRAM HYDROCOBROMIDE) [Concomitant]
  8. VENLAFAXINE HCL [Concomitant]
  9. TOPIRAMATE [Concomitant]

REACTIONS (5)
  - ALOPECIA [None]
  - CONDITION AGGRAVATED [None]
  - DRUG INEFFECTIVE [None]
  - HYSTERECTOMY [None]
  - POLYCYSTIC OVARIES [None]
